FAERS Safety Report 21040986 (Version 1)
Quarter: 2022Q3

REPORT INFORMATION
  Report Type: Spontaneous
  Country: DE (occurrence: DE)
  Receive Date: 20220704
  Receipt Date: 20220704
  Transmission Date: 20221026
  Serious: Yes (Congenital Anomaly, Other)
  Sender: FDA-Public Use
  Company Number: DE-NOVARTISPH-NVSC2022DE146926

PATIENT
  Age: 1 Day
  Sex: Male
  Weight: 2.75 kg

DRUGS (7)
  1. METOPROLOL [Suspect]
     Active Substance: METOPROLOL
     Indication: Foetal exposure during pregnancy
     Dosage: MATERNAL DOSE 100 [MG/D (BIS 50)](0. - 40.5. GESTATIONAL WEEK)
     Route: 064
     Dates: start: 20210307, end: 20211217
  2. BOOSTRIX [Concomitant]
     Active Substance: TETANUS TOXOID, REDUCED DIPHTHERIA TOXOID AND ACELLULAR PERTUSSIS VACCINE, ADSORBED ANTIGENS
     Indication: Foetal exposure during pregnancy
     Dosage: UNK
     Route: 064
     Dates: start: 20211007, end: 20211007
  3. METFORMIN [Concomitant]
     Active Substance: METFORMIN HYDROCHLORIDE
     Indication: Foetal exposure during pregnancy
     Dosage: UNK (MATERNA DOSE: 1000 MG Q12H), 2000 [MG/D (1000-0-1000) ])
     Route: 064
  4. RAMIPRIL [Concomitant]
     Active Substance: RAMIPRIL
     Indication: Foetal exposure during pregnancy
     Dosage: UNK (MATERNAL DOSE 5 MG QD, 5 [MG/D (5-0-0) ]
     Route: 064
  5. LERCANIDIPINE [Concomitant]
     Active Substance: LERCANIDIPINE
     Indication: Foetal exposure during pregnancy
     Dosage: MATERNAL DOSE 10 MG QD, 10 [MG/D (10-0-0) ]
     Route: 064
  6. ASPIRIN [Concomitant]
     Active Substance: ASPIRIN
     Indication: Foetal exposure during pregnancy
     Dosage: UNK (MATERNAL DOSE 150 MG QD, 150 [MG/D ]/ PROPHYLAXIS PRE-ECLAMPSIA
     Route: 064
  7. INFLUVAC [Concomitant]
     Active Substance: INFLUENZA VIRUS VACCINE TRIVALENT TYPE A+B
     Indication: Foetal exposure during pregnancy
     Dosage: UNK
     Route: 064
     Dates: start: 20211028, end: 20211028

REACTIONS (3)
  - Hypospadias [Unknown]
  - Small for dates baby [Unknown]
  - Foetal exposure during pregnancy [Unknown]

NARRATIVE: CASE EVENT DATE: 20211201
